FAERS Safety Report 5342645-0 (Version None)
Quarter: 2007Q2

REPORT INFORMATION
  Report Type: 
  Country: None (occurrence: None)
  Receive Date: 20070601
  Receipt Date: 20070524
  Transmission Date: 20071010
  Serious: Yes (Hospitalization)
  Sender: FDA-Public Use
  Company Number: GR-BOEHRINGER INGELHEIM PHARMACEUTICALS, INC.-2007-DE-03126GB

PATIENT
  Age: 62 Year
  Sex: Male

DRUGS (4)
  1. MOVATEC [Suspect]
     Indication: BACK PAIN
     Dosage: STRENGTH: 15/1,5 MG/ML
     Route: 030
  2. MUSCO-RIL [Suspect]
     Indication: BACK PAIN
     Dosage: STRENGTH: 4/2 MG/ML
     Route: 030
  3. DRUG FOR HYPERTENSION [Concomitant]
     Indication: HYPERTENSION
     Route: 048
  4. DRUG FOR HEART FAILURE [Concomitant]
     Indication: CARDIAC FAILURE
     Route: 048

REACTIONS (2)
  - DYSPNOEA [None]
  - PULMONARY OEDEMA [None]
